APPROVED DRUG PRODUCT: ULTRAVIST 300 IN PLASTIC CONTAINER
Active Ingredient: IOPROMIDE
Strength: 62.3%
Dosage Form/Route: INJECTABLE;INJECTION
Application: N020220 | Product #005
Applicant: BAYER HEALTHCARE PHARMACEUTICALS INC
Approved: Nov 18, 2008 | RLD: Yes | RS: No | Type: DISCN